FAERS Safety Report 8819769 (Version 1)
Quarter: 2012Q4

REPORT INFORMATION
  Report Type: 
  Country: US (occurrence: US)
  Receive Date: 20121001
  Receipt Date: 20121001
  Transmission Date: 20130627
  Serious: Yes (Other)
  Sender: FDA-Public Use
  Company Number: US-ROCHE-1130222

PATIENT
  Sex: Female

DRUGS (4)
  1. HERCEPTIN [Suspect]
     Indication: BREAST CANCER
     Route: 042
  2. HERCEPTIN [Suspect]
     Indication: BREAST CANCER FEMALE
  3. FEMARA [Suspect]
     Indication: PRODUCT USED FOR UNKNOWN INDICATION
  4. AROMASIN [Concomitant]
     Route: 065

REACTIONS (11)
  - Metastases to bone [Unknown]
  - Hepatic mass [Unknown]
  - Tachycardia [Unknown]
  - Hyperhidrosis [Unknown]
  - Rash [Recovered/Resolved]
  - Pruritus [Recovered/Resolved]
  - Skin irritation [Unknown]
  - Pruritus [Unknown]
  - Skin lesion [Unknown]
  - Urticaria [Unknown]
  - Headache [Unknown]
